FAERS Safety Report 5317305-2 (Version None)
Quarter: 2007Q2

REPORT INFORMATION
  Report Type: 
  Country: None (occurrence: None)
  Receive Date: 20070504
  Receipt Date: 20070424
  Transmission Date: 20071010
  Serious: Yes (Other)
  Sender: FDA-Public Use
  Company Number: FR-PFIZER INC-2007033720

PATIENT
  Age: 60 Year
  Sex: Male

DRUGS (3)
  1. NEURONTIN [Suspect]
     Indication: PARAPARESIS
  2. LYRICA [Suspect]
     Indication: NEURALGIA
     Dates: start: 20070401, end: 20070401
  3. ALL OTHER THERAPEUTIC PRODUCTS [Concomitant]

REACTIONS (2)
  - MUSCULAR WEAKNESS [None]
  - PAIN [None]
